FAERS Safety Report 17308017 (Version 3)
Quarter: 2020Q1

REPORT INFORMATION
  Report Type: Spontaneous
  Country: JP (occurrence: JP)
  Receive Date: 20200123
  Receipt Date: 20200331
  Transmission Date: 20200409
  Serious: Yes (Other)
  Sender: FDA-Public Use
  Company Number: JP-SUNOVION-2020SUN000176

PATIENT
  Age: 80 Year
  Sex: Female

DRUGS (4)
  1. LUNESTA [Suspect]
     Active Substance: ESZOPICLONE
     Dosage: 2 MG, QD
     Route: 048
     Dates: start: 201911, end: 20191209
  2. CANDESARTAN. [Suspect]
     Active Substance: CANDESARTAN
     Dosage: DOSE UNKNOWN
     Route: 065
  3. LUNESTA [Suspect]
     Active Substance: ESZOPICLONE
     Indication: INSOMNIA
     Dosage: 1 MG, QD
     Route: 048
     Dates: start: 20191011, end: 201911
  4. PRAZAXA [Suspect]
     Active Substance: DABIGATRAN ETEXILATE MESYLATE
     Dosage: DOSE UNKNOWN
     Route: 065

REACTIONS (3)
  - Dysgeusia [Recovered/Resolved]
  - Haemorrhage subcutaneous [Recovered/Resolved]
  - Erythema [Recovered/Resolved]
